FAERS Safety Report 6943070-9 (Version None)
Quarter: 2010Q3

REPORT INFORMATION
  Report Type: 
  Country: None (occurrence: None)
  Receive Date: 20100826
  Receipt Date: 20100819
  Transmission Date: 20110219
  Serious: Yes (Other)
  Sender: FDA-Public Use
  Company Number: GB-TEVA-245665ISR

PATIENT
  Sex: Female

DRUGS (2)
  1. NITROFURANTOIN [Suspect]
     Indication: URINARY TRACT INFECTION
     Dates: start: 20100401, end: 20100401
  2. H1N1 INFLUENZA VACCINE [Suspect]
     Indication: IMMUNISATION
     Dates: start: 20091101, end: 20091101

REACTIONS (2)
  - DEMYELINATION [None]
  - PARAESTHESIA [None]
